FAERS Safety Report 24922422 (Version 1)
Quarter: 2025Q1

REPORT INFORMATION
  Report Type: Spontaneous
  Country: KR (occurrence: KR)
  Receive Date: 20250204
  Receipt Date: 20250204
  Transmission Date: 20250409
  Serious: Yes (Hospitalization, Other)
  Sender: MERCK
  Company Number: KR-009507513-2502KOR000325

PATIENT
  Age: 58 Year
  Sex: Female

DRUGS (1)
  1. KEYTRUDA [Suspect]
     Active Substance: PEMBROLIZUMAB
     Indication: Lung neoplasm malignant
     Dosage: 200 MILLIGRAM, Q3W
     Dates: end: 20231212

REACTIONS (4)
  - Pruritus [Recovering/Resolving]
  - Urticaria [Recovering/Resolving]
  - Oedema [Recovering/Resolving]
  - Erythema [Recovering/Resolving]
